FAERS Safety Report 6309513-9 (Version None)
Quarter: 2009Q3

REPORT INFORMATION
  Report Type: 
  Country: None (occurrence: None)
  Receive Date: 20090811
  Receipt Date: 20090525
  Transmission Date: 20100115
  Serious: Yes (Other)
  Sender: FDA-Public Use
  Company Number: 2009008779

PATIENT
  Age: 76 Year
  Sex: Female

DRUGS (2)
  1. TRISENOX [Suspect]
     Indication: ACUTE PROMYELOCYTIC LEUKAEMIA
     Dosage: INTRAVENOUS DRIP
     Route: 041
  2. PURINETOL (MERCAPTOPURINE) [Suspect]

REACTIONS (2)
  - FEBRILE BONE MARROW APLASIA [None]
  - HEPATITIS [None]
